FAERS Safety Report 8318060-4 (Version None)
Quarter: 2012Q2

REPORT INFORMATION
  Report Type: 
  Country: None (occurrence: None)
  Receive Date: 20120427
  Receipt Date: 20120425
  Transmission Date: 20120825
  Serious: No
  Sender: FDA-Public Use
  Company Number: CA-ROCHE-1061157

PATIENT
  Sex: Female
  Weight: 82.174 kg

DRUGS (8)
  1. ACTEMRA [Suspect]
     Route: 042
     Dates: start: 20110922, end: 20120322
  2. ALPRAZ [Concomitant]
     Route: 065
  3. FOLIC ACID [Concomitant]
     Route: 065
  4. METHOTREXATE [Concomitant]
     Route: 065
  5. ELAVIL [Concomitant]
     Route: 065
  6. CYTOTEC [Concomitant]
     Route: 065
  7. ACTEMRA [Suspect]
     Indication: RHEUMATOID ARTHRITIS
     Route: 042
     Dates: start: 20101117, end: 20120322
  8. ACTEMRA [Suspect]
     Route: 042
     Dates: start: 20110405

REACTIONS (2)
  - OROPHARYNGEAL PAIN [None]
  - NASAL CONGESTION [None]
